FAERS Safety Report 9443606 (Version 1)
Quarter: 2013Q3

REPORT INFORMATION
  Report Type: Spontaneous
  Country: US (occurrence: US)
  Receive Date: 20130806
  Receipt Date: 20130806
  Transmission Date: 20140515
  Serious: Yes (Other)
  Sender: FDA-Public Use
  Company Number: CHPA2013US012297

PATIENT
  Age: 67 Year
  Sex: Male

DRUGS (3)
  1. EXCEDRIN EXTRA STRENGTH [Suspect]
     Indication: PAIN
     Dosage: 2 DF, UNK
     Route: 048
  2. EXCEDRIN PM [Suspect]
     Dosage: UNK, UNK
  3. LISINOPRIL [Concomitant]
     Indication: BLOOD PRESSURE INCREASED
     Dosage: UNK, UNK

REACTIONS (4)
  - Blood pressure increased [Recovered/Resolved]
  - Intervertebral disc protrusion [Unknown]
  - Dizziness [Recovered/Resolved]
  - Dyskinesia [Recovered/Resolved]
